FAERS Safety Report 6811474-0 (Version None)
Quarter: 2010Q2

REPORT INFORMATION
  Report Type: 
  Country: None (occurrence: None)
  Receive Date: 20100629
  Receipt Date: 20100629
  Transmission Date: 20101027
  Serious: Yes (Life-Threatening, Hospitalization)
  Sender: FDA-Public Use
  Company Number: None

PATIENT
  Sex: Female
  Weight: 107.5025 kg

DRUGS (1)
  1. AUGMENTIN '875' [Suspect]
     Indication: SINUSITIS
     Dosage: 875MG 2X A DAY
     Dates: start: 20100429, end: 20100501

REACTIONS (6)
  - CHILLS [None]
  - CLOSTRIDIAL INFECTION [None]
  - GASTRITIS [None]
  - MALAISE [None]
  - NAUSEA [None]
  - PYREXIA [None]
